FAERS Safety Report 11772517 (Version 1)
Quarter: 2015Q4

REPORT INFORMATION
  Report Type: Spontaneous
  Country: US (occurrence: US)
  Receive Date: 20151124
  Receipt Date: 20151124
  Transmission Date: 20160304
  Serious: Yes (Other)
  Sender: FDA-Public Use
  Company Number: US-TEVA-610660USA

PATIENT
  Age: 56 Year
  Sex: Female

DRUGS (4)
  1. INTERLEUKIN-2 [Suspect]
     Active Substance: ALDESLEUKIN
     Indication: METASTATIC MALIGNANT MELANOMA
     Dosage: HIGH DOSE
     Route: 065
  2. VEMURAFENIB [Suspect]
     Active Substance: VEMURAFENIB
     Indication: METASTATIC MALIGNANT MELANOMA
     Dosage: DOSE REDUCED TO 50% AND THEN STARTED ON 1 WEEK ON, 1 WEEK OFF FOR 12 MONTHS THEN DISCONTINUED
     Route: 065
  3. IPILIMUMAB [Suspect]
     Active Substance: IPILIMUMAB
     Indication: METASTATIC MALIGNANT MELANOMA
     Dosage: COMPLETED A COURSE
     Route: 065
  4. TEMOZOLOMIDE. [Suspect]
     Active Substance: TEMOZOLOMIDE
     Indication: METASTATIC MALIGNANT MELANOMA
     Dosage: INTERMITTENT LOW DOSE
     Route: 065

REACTIONS (4)
  - Synovitis [Unknown]
  - Paresis [Recovered/Resolved]
  - Polyarthritis [Recovering/Resolving]
  - Cerebrovascular accident [Recovered/Resolved]
